FAERS Safety Report 6370734-0 (Version None)
Quarter: 2009Q3

REPORT INFORMATION
  Report Type: 
  Country: None (occurrence: None)
  Receive Date: 20090923
  Receipt Date: 20071130
  Transmission Date: 20100115
  Serious: Yes (Other)
  Sender: FDA-Public Use
  Company Number: US-ASTRAZENECA-2006UW26104

PATIENT
  Age: 50 Year
  Sex: Male
  Weight: 91.2 kg

DRUGS (15)
  1. SEROQUEL [Suspect]
     Indication: SLEEP DISORDER
     Route: 048
     Dates: start: 19990101, end: 20060101
  2. SEROQUEL [Suspect]
     Indication: DEPRESSION
     Route: 048
     Dates: start: 19990101, end: 20060101
  3. SEROQUEL [Suspect]
     Indication: SCHIZOPHRENIA
     Route: 048
     Dates: start: 19990101, end: 20060101
  4. SEROQUEL [Suspect]
     Route: 048
  5. SEROQUEL [Suspect]
     Route: 048
  6. SEROQUEL [Suspect]
     Route: 048
  7. RISPERDAL [Concomitant]
  8. IBUPROFEN [Concomitant]
     Dates: start: 20030117
  9. DIPHENHYDRAMINE HCL [Concomitant]
     Indication: SOMNOLENCE
     Dates: start: 19991022
  10. SERTRALINE HCL [Concomitant]
     Indication: SOMNOLENCE
     Dates: start: 19991025
  11. BACLOFEN [Concomitant]
     Dates: start: 19991220
  12. INH [Concomitant]
     Dates: start: 20010515
  13. DICYCLOMINE [Concomitant]
     Dates: start: 20040726
  14. AMITRIPTYLINE [Concomitant]
     Dates: start: 20050119
  15. CHLORPHENIRAMINE MALEATE [Concomitant]
     Dates: start: 20031208

REACTIONS (2)
  - PANCREATITIS [None]
  - TARDIVE DYSKINESIA [None]
